FAERS Safety Report 10061937 (Version 2)
Quarter: 2014Q2

REPORT INFORMATION
  Report Type: Spontaneous
  Country: GB (occurrence: None)
  Receive Date: 20140403
  Receipt Date: 20140417
  Transmission Date: 20141212
  Serious: Yes (Hospitalization, Disabling)
  Sender: FDA-Public Use
  Company Number: AUR-APL-2014-03980

PATIENT
  Age: 65 Year
  Sex: Female
  Weight: 115 kg

DRUGS (11)
  1. PIOGLITAZONE [Suspect]
     Indication: PRODUCT USED FOR UNKNOWN INDICATION
     Route: 048
     Dates: start: 20110516, end: 20140313
  2. ATORVASTATIN (ATORVASTATIN) [Concomitant]
  3. CANDESARTAN (CANDESARTAN) [Concomitant]
  4. CITALOPRAM HYDROBROMIDE (CITALOPRAM HYDROBROMIDE) [Concomitant]
  5. DIGOXIN (DIGOXIN) [Concomitant]
  6. DILTIAZEM HYDROCHLORIDE (DILTIAZEM HYDROCHLORIDE) [Concomitant]
  7. FUROSEMIDE (FUROSEMIDE) [Concomitant]
  8. METFORMIN HYDROCHLORIDE (METFORMIN HYDROCHLORIDE) [Concomitant]
  9. SOLIFENACIN (SOLIFENACIN) [Concomitant]
  10. TRIMETHOPRIM (TRIMETHOPRIM) [Concomitant]
  11. WARFARIN (WARFARIN) [Concomitant]

REACTIONS (1)
  - Cardiac failure congestive [None]
